FAERS Safety Report 13854938 (Version 3)
Quarter: 2017Q4

REPORT INFORMATION
  Report Type: Spontaneous
  Country: US (occurrence: US)
  Receive Date: 20170810
  Receipt Date: 20171101
  Transmission Date: 20180320
  Serious: Yes (Hospitalization, Other)
  Sender: FDA-Public Use
  Company Number: US-OTSUKA-2017_016913

PATIENT
  Age: 28 Year
  Sex: Male
  Weight: 71.65 kg

DRUGS (2)
  1. REXULTI [Suspect]
     Active Substance: BREXPIPRAZOLE
     Indication: BIPOLAR I DISORDER
     Dosage: 1 MG, QD (NIGHTLY)
     Route: 065
     Dates: start: 20170302
  2. REXULTI [Suspect]
     Active Substance: BREXPIPRAZOLE
     Indication: MANIA

REACTIONS (6)
  - Dehydration [Unknown]
  - Confusional state [Recovered/Resolved]
  - Lethargy [Recovered/Resolved]
  - Rhabdomyolysis [Recovered/Resolved]
  - Fatigue [Not Recovered/Not Resolved]
  - Product use in unapproved indication [Unknown]

NARRATIVE: CASE EVENT DATE: 20170302
